FAERS Safety Report 9349046 (Version 1)
Quarter: 2013Q2

REPORT INFORMATION
  Report Type: Spontaneous
  Country: US (occurrence: US)
  Receive Date: 20130614
  Receipt Date: 20130614
  Transmission Date: 20140414
  Serious: Yes (Disabling)
  Sender: FDA-Public Use
  Company Number: US-PERRIGO-13US005994

PATIENT
  Age: 91 Year
  Sex: Female

DRUGS (1)
  1. IMIQUIMOD 5% 2H1 [Suspect]
     Indication: BASAL CELL CARCINOMA
     Dosage: UNKNOWN, UNKNOWN
     Route: 061

REACTIONS (8)
  - Delirium [Recovered/Resolved with Sequelae]
  - Cognitive disorder [Recovered/Resolved with Sequelae]
  - Disturbance in attention [Recovered/Resolved with Sequelae]
  - Insomnia [Recovered/Resolved with Sequelae]
  - Agitation [Recovered/Resolved with Sequelae]
  - Dementia [Not Recovered/Not Resolved]
  - Overdose [Recovered/Resolved with Sequelae]
  - Inflammation [Recovered/Resolved with Sequelae]
